FAERS Safety Report 17194991 (Version 1)
Quarter: 2019Q4

REPORT INFORMATION
  Report Type: Spontaneous
  Country: GB (occurrence: GB)
  Receive Date: 20191224
  Receipt Date: 20191224
  Transmission Date: 20200122
  Serious: Yes (Other)
  Sender: FDA-Public Use
  Company Number: GB-SAMSUNG BIOEPIS-SB-2019-38735

PATIENT
  Age: 66 Year
  Sex: Male

DRUGS (1)
  1. IMRALDI [Suspect]
     Active Substance: ADALIMUMAB
     Indication: HIDRADENITIS
     Route: 051
     Dates: start: 20190110, end: 20190503

REACTIONS (3)
  - Influenza like illness [Recovering/Resolving]
  - Lethargy [Recovering/Resolving]
  - Syncope [Recovering/Resolving]
